FAERS Safety Report 9443661 (Version 2)
Quarter: 2013Q3

REPORT INFORMATION
  Report Type: Report from Study
  Country: JP (occurrence: JP)
  Receive Date: 20130806
  Receipt Date: 20130829
  Transmission Date: 20140515
  Serious: Yes (Death, Other)
  Sender: FDA-Public Use
  Company Number: JP-GENZYME-THYM-1003952

PATIENT
  Age: 16 Year
  Sex: Male
  Weight: 41 kg

DRUGS (22)
  1. THYMOGLOBULIN [Suspect]
     Indication: BONE MARROW CONDITIONING REGIMEN
     Dosage: 50 MG, QD (OVER 10 HOURS)
     Route: 065
     Dates: start: 20111111, end: 20111111
  2. NEOPHAGEN [Concomitant]
     Indication: PROPHYLAXIS
     Dosage: UNK
     Route: 065
     Dates: start: 20111107
  3. TATHION [Concomitant]
     Indication: PROPHYLAXIS
     Dosage: UNK
     Route: 065
     Dates: start: 20111107
  4. GRANISETRON [Concomitant]
     Indication: PROPHYLAXIS OF NAUSEA AND VOMITING
     Dosage: UNK
     Route: 065
     Dates: start: 20111107
  5. FAMOTIDINE [Concomitant]
     Indication: HAEMORRHAGE PROPHYLAXIS
     Dosage: UNK
     Route: 065
     Dates: start: 20111107
  6. MANNITOL [Concomitant]
     Indication: RENAL FAILURE
     Dosage: UNK
     Route: 065
     Dates: start: 20111108, end: 20111111
  7. KENKETSU GLOVENIN-I [Concomitant]
     Indication: ANTIVIRAL PROPHYLAXIS
     Dosage: UNK
     Route: 065
     Dates: start: 20111110, end: 20120210
  8. FUNGUARD [Concomitant]
     Indication: ANTIFUNGAL PROPHYLAXIS
     Dosage: UNK
     Route: 065
     Dates: start: 20111106, end: 20120125
  9. DENOSINE [Concomitant]
     Indication: ANTIVIRAL PROPHYLAXIS
     Dosage: UNK
     Route: 065
     Dates: start: 20111106, end: 20111112
  10. FLUMARIN [Concomitant]
     Indication: ANTIBIOTIC PROPHYLAXIS
     Dosage: UNK
     Route: 065
     Dates: start: 20111106, end: 20111121
  11. HEPARIN SODIUM [Concomitant]
     Indication: VENOOCCLUSIVE LIVER DISEASE
     Dosage: UNK
     Route: 065
     Dates: start: 20111106, end: 20111217
  12. ACICLOVIR [Concomitant]
     Indication: ANTIVIRAL PROPHYLAXIS
     Dosage: UNK
     Route: 065
     Dates: start: 20111113, end: 20111218
  13. SOL-MELCORT [Concomitant]
     Indication: ANAPHYLAXIS PROPHYLAXIS
     Dosage: UNK
     Route: 065
     Dates: start: 20111111, end: 20111112
  14. HAPTOGLOBINS [Concomitant]
     Indication: HAEMOGLOBINURIA
     Dosage: UNK
     Route: 065
     Dates: start: 20111113, end: 20111113
  15. CLEITON [Concomitant]
     Indication: ANAPHYLAXIS PROPHYLAXIS
     Dosage: UNK
     Route: 065
     Dates: start: 20111113, end: 20111113
  16. PROGRAF [Concomitant]
     Indication: PROPHYLAXIS AGAINST GRAFT VERSUS HOST DISEASE
     Dosage: UNK
     Route: 065
     Dates: start: 20111112, end: 20120301
  17. METHOTREXATE [Concomitant]
     Indication: PROPHYLAXIS AGAINST GRAFT VERSUS HOST DISEASE
     Dosage: UNK
     Route: 065
     Dates: start: 20111114, end: 20111119
  18. CARBENIN [Concomitant]
     Indication: ANTIBIOTIC PROPHYLAXIS
     Dosage: UNK
     Route: 065
     Dates: start: 20111121, end: 20111123
  19. BAKTAR [Concomitant]
     Indication: PNEUMOCYSTIS JIROVECII PNEUMONIA
     Dosage: UNK
     Route: 065
  20. POLYMYXIN B SULFATE [Concomitant]
     Indication: ENTEROCOLITIS BACTERIAL
     Dosage: UNK
     Route: 065
  21. KAITRON [Concomitant]
     Indication: CARDIAC FAILURE CONGESTIVE
     Dosage: UNK
     Route: 065
  22. URSO [Concomitant]
     Indication: VENOOCCLUSIVE LIVER DISEASE
     Dosage: UNK
     Route: 065
     Dates: start: 20111030

REACTIONS (6)
  - Death [Fatal]
  - Acute graft versus host disease in skin [Unknown]
  - Cytomegalovirus infection [Unknown]
  - Sepsis [Unknown]
  - Herpes simplex meningoencephalitis [Unknown]
  - Neuropathy peripheral [Unknown]
